FAERS Safety Report 24390042 (Version 2)
Quarter: 2024Q4

REPORT INFORMATION
  Report Type: Spontaneous
  Country: MY (occurrence: MY)
  Receive Date: 20241003
  Receipt Date: 20241011
  Transmission Date: 20250114
  Serious: Yes (Other)
  Sender: ROCHE
  Company Number: MY-002147023-NVSC2024MY192403

PATIENT

DRUGS (1)
  1. XOLAIR [Suspect]
     Active Substance: OMALIZUMAB
     Indication: Product used for unknown indication
     Dosage: UNK
     Route: 065

REACTIONS (7)
  - Hypogammaglobulinaemia [Unknown]
  - Anaphylactic shock [Unknown]
  - Serum ferritin decreased [Unknown]
  - Urticaria pressure [Unknown]
  - Idiopathic urticaria [Unknown]
  - Urticaria [Unknown]
  - Drug ineffective [Unknown]
